FAERS Safety Report 9689921 (Version 3)
Quarter: 2014Q1

REPORT INFORMATION
  Report Type: Spontaneous
  Country: US (occurrence: US)
  Receive Date: 20131115
  Receipt Date: 20140224
  Transmission Date: 20141002
  Serious: No
  Sender: FDA-Public Use
  Company Number: US-PFIZER INC-2013325338

PATIENT
  Age: 40 Year
  Sex: Female
  Weight: 70.3 kg

DRUGS (8)
  1. NEURONTIN [Suspect]
     Indication: PAIN
     Dosage: 100 MG, 3X/DAY
     Dates: start: 2010
  2. NEURONTIN [Suspect]
     Indication: NERVE INJURY
     Dosage: 300 MG, 3X/DAY
  3. NEURONTIN [Suspect]
     Indication: BURNING SENSATION
     Dosage: 600 MG, 3X/DAY
  4. NEURONTIN [Suspect]
     Dosage: 800 MG, 3X/DAY
  5. LISINOPRIL [Suspect]
     Indication: HYPERTENSION
     Dosage: 40 MG, DAILY
     Dates: start: 2013
  6. LYRICA [Suspect]
     Indication: PAIN
     Dosage: 50 MG OR 75 MG, UNK
     Route: 048
  7. LYRICA [Suspect]
     Indication: NERVE INJURY
  8. LYRICA [Suspect]
     Indication: BURNING SENSATION

REACTIONS (8)
  - Off label use [Unknown]
  - Intentional drug misuse [Unknown]
  - Diarrhoea [Not Recovered/Not Resolved]
  - Dehydration [Unknown]
  - Weight abnormal [Unknown]
  - Drug ineffective [Unknown]
  - Vomiting [Unknown]
  - Feeling abnormal [Unknown]
